FAERS Safety Report 5507790-5 (Version None)
Quarter: 2007Q4

REPORT INFORMATION
  Report Type: 
  Country: None (occurrence: None)
  Receive Date: 20071106
  Receipt Date: 20071030
  Transmission Date: 20080405
  Serious: Yes (Death)
  Sender: FDA-Public Use
  Company Number: US-KINGPHARMUSA00001-K200701378

PATIENT

DRUGS (8)
  1. SKELAXIN [Suspect]
     Indication: BACK PAIN
     Dosage: 800 MG, BID
     Dates: start: 20060130
  2. FENTANYL [Suspect]
     Dosage: 75 MCG EVERY 3 DAYS
     Route: 062
     Dates: start: 20060130
  3. PERCOCET [Suspect]
     Indication: BACK PAIN
     Dosage: 1-2 EVERY 4 HOURS AS NEEDED
     Dates: end: 20060201
  4. OXYCODONE HCL [Suspect]
  5. ALCOHOL                            /00002101/ [Suspect]
     Dates: start: 20060204
  6. ROBAXIN [Suspect]
  7. IBUPROFEN [Concomitant]
     Dosage: 800 MG, TID
  8. LEXAPRO [Concomitant]
     Dosage: UNK, QD

REACTIONS (4)
  - ABASIA [None]
  - ALCOHOL INTERACTION [None]
  - OVERDOSE [None]
  - SPEECH DISORDER [None]
